FAERS Safety Report 6751828-4 (Version None)
Quarter: 2010Q2

REPORT INFORMATION
  Report Type: 
  Country: None (occurrence: None)
  Receive Date: 20100526
  Receipt Date: 20100402
  Transmission Date: 20101027
  Serious: No
  Sender: FDA-Public Use
  Company Number: 306566

PATIENT
  Sex: Female

DRUGS (2)
  1. VICTOZA [Suspect]
     Indication: TYPE 2 DIABETES MELLITUS
     Dosage: SUBCUTANEOUS
     Route: 058
     Dates: end: 20100401
  2. PRANDIN [Suspect]
     Indication: TYPE 2 DIABETES MELLITUS
     Dates: end: 20100401

REACTIONS (1)
  - LIVER FUNCTION TEST ABNORMAL [None]
